FAERS Safety Report 13946108 (Version 3)
Quarter: 2017Q4

REPORT INFORMATION
  Report Type: Spontaneous
  Country: US (occurrence: US)
  Receive Date: 20170907
  Receipt Date: 20171027
  Transmission Date: 20180320
  Serious: No
  Sender: FDA-Public Use
  Company Number: US-TAIHO ONCOLOGY INC-EU-2017-01181

PATIENT
  Age: 75 Year
  Sex: Male
  Weight: 90.8 kg

DRUGS (7)
  1. METFORMIN [Concomitant]
     Active Substance: METFORMIN HYDROCHLORIDE
  2. IRBESARTAN. [Concomitant]
     Active Substance: IRBESARTAN
  3. MAGNESIUM [Concomitant]
     Active Substance: MAGNESIUM
     Dosage: NI
  4. FISH OIL [Concomitant]
     Active Substance: FISH OIL
  5. METOPROLOL. [Concomitant]
     Active Substance: METOPROLOL
     Dosage: ER
  6. GLIMEPIRIDE. [Concomitant]
     Active Substance: GLIMEPIRIDE
  7. LONSURF [Suspect]
     Active Substance: TIPIRACIL HYDROCHLORIDE\TRIFLURIDINE
     Indication: COLON CANCER METASTATIC
     Dosage: PM - CURRENT CYCLE 3
     Route: 048
     Dates: start: 20170821

REACTIONS (5)
  - Paraesthesia [Unknown]
  - Rash [Unknown]
  - Pruritus generalised [Not Recovered/Not Resolved]
  - Skin irritation [Unknown]
  - Inappropriate schedule of drug administration [Unknown]

NARRATIVE: CASE EVENT DATE: 201708
